FAERS Safety Report 14421781 (Version 7)
Quarter: 2024Q4

REPORT INFORMATION
  Report Type: Spontaneous
  Country: CA (occurrence: CA)
  Receive Date: 20180122
  Receipt Date: 20241026
  Transmission Date: 20250115
  Serious: Yes (Hospitalization, Other)
  Sender: AMGEN
  Company Number: CA-AMGEN-CANSP2018005831

PATIENT
  Age: 48 Year
  Sex: Female
  Weight: 106 kg

DRUGS (140)
  1. NEULASTA [Suspect]
     Active Substance: PEGFILGRASTIM
     Indication: Supportive care
     Dosage: 6 MILLIGRAM, QD
     Route: 058
  2. NEULASTA [Suspect]
     Active Substance: PEGFILGRASTIM
     Dosage: 6 MILLIGRAM
     Route: 058
  3. NEULASTA [Suspect]
     Active Substance: PEGFILGRASTIM
     Dosage: 6 MILLIGRAM
     Route: 058
  4. NEULASTA [Suspect]
     Active Substance: PEGFILGRASTIM
     Dosage: 6 MILLIGRAM
     Route: 058
  5. NEULASTA [Suspect]
     Active Substance: PEGFILGRASTIM
     Dosage: 6 MILLIGRAM
     Route: 058
  6. NEULASTA [Suspect]
     Active Substance: PEGFILGRASTIM
     Dosage: 6 MILLIGRAM
     Route: 058
  7. NEULASTA [Suspect]
     Active Substance: PEGFILGRASTIM
     Dosage: 6 MILLIGRAM
     Route: 058
  8. NEUPOGEN [Suspect]
     Active Substance: FILGRASTIM
     Indication: Supportive care
     Dosage: 480 MICROGRAM, QD
     Route: 065
  9. NEUPOGEN [Suspect]
     Active Substance: FILGRASTIM
     Dosage: 480 MICROGRAM, QD
     Route: 065
  10. NEUPOGEN [Suspect]
     Active Substance: FILGRASTIM
     Dosage: 125 MICROGRAM, QD
     Route: 065
  11. NEUPOGEN [Suspect]
     Active Substance: FILGRASTIM
     Dosage: 480 MICROGRAM, QD
     Route: 065
  12. NEUPOGEN [Suspect]
     Active Substance: FILGRASTIM
     Dosage: 480 MICROGRAM, QD
     Route: 065
  13. TRASTUZUMAB [Suspect]
     Active Substance: TRASTUZUMAB
     Indication: Tardive dyskinesia
     Dosage: 626 MILLIGRAM
     Route: 065
  14. TRASTUZUMAB [Suspect]
     Active Substance: TRASTUZUMAB
     Dosage: UNK
     Route: 065
  15. TRASTUZUMAB [Suspect]
     Active Substance: TRASTUZUMAB
     Dosage: 866 MILLIGRAM, QD
     Route: 065
  16. TRASTUZUMAB [Suspect]
     Active Substance: TRASTUZUMAB
     Dosage: 626 MILLIGRAM
     Route: 065
  17. TRASTUZUMAB [Suspect]
     Active Substance: TRASTUZUMAB
     Dosage: 626 MILLIGRAM
     Route: 065
  18. TRASTUZUMAB [Suspect]
     Active Substance: TRASTUZUMAB
     Dosage: UNK
     Route: 048
  19. TRASTUZUMAB [Suspect]
     Active Substance: TRASTUZUMAB
     Dosage: 866 MILLIGRAM
     Route: 065
  20. TRASTUZUMAB [Suspect]
     Active Substance: TRASTUZUMAB
     Dosage: UNK
     Route: 065
  21. TRASTUZUMAB [Suspect]
     Active Substance: TRASTUZUMAB
     Dosage: 626 MILLIGRAM
     Route: 065
  22. TRASTUZUMAB [Suspect]
     Active Substance: TRASTUZUMAB
     Dosage: 626 MILLIGRAM
     Route: 065
  23. TRASTUZUMAB [Suspect]
     Active Substance: TRASTUZUMAB
     Dosage: 866 MILLIGRAM
     Route: 065
  24. APREPITANT [Suspect]
     Active Substance: APREPITANT
     Indication: Supportive care
     Dosage: 80 MILLIGRAM, QD (1 EVERY 1 DAYS)
     Route: 048
  25. APREPITANT [Suspect]
     Active Substance: APREPITANT
     Dosage: 125 MILLIGRAM
     Route: 048
  26. APREPITANT [Suspect]
     Active Substance: APREPITANT
     Dosage: 125 MILLIGRAM
     Route: 048
  27. APREPITANT [Suspect]
     Active Substance: APREPITANT
     Dosage: 125 MILLIGRAM
     Route: 048
  28. APREPITANT [Suspect]
     Active Substance: APREPITANT
     Dosage: 80 MILLIGRAM, QD
     Route: 048
  29. APREPITANT [Suspect]
     Active Substance: APREPITANT
     Dosage: 80 MILLIGRAM, QD
     Route: 048
  30. APREPITANT [Suspect]
     Active Substance: APREPITANT
     Dosage: 80 MILLIGRAM, QD
     Route: 048
  31. APREPITANT [Suspect]
     Active Substance: APREPITANT
     Dosage: 80 MILLIGRAM, QD
     Route: 048
  32. APREPITANT [Suspect]
     Active Substance: APREPITANT
     Dosage: 125 MILLIGRAM
     Route: 048
  33. APREPITANT [Suspect]
     Active Substance: APREPITANT
     Dosage: 80 MILLIGRAM, QD
     Route: 048
  34. APREPITANT [Suspect]
     Active Substance: APREPITANT
     Dosage: 80 MILLIGRAM, QD
     Route: 048
  35. BETAMETHASONE [Suspect]
     Active Substance: BETAMETHASONE
     Indication: Tardive dyskinesia
     Dosage: UNK, BID (2 EVERY 1 DAYS)
     Route: 065
  36. BETAMETHASONE [Suspect]
     Active Substance: BETAMETHASONE
     Dosage: UNK
     Route: 048
  37. BETAMETHASONE [Suspect]
     Active Substance: BETAMETHASONE
     Dosage: UNK
     Route: 048
  38. BETAMETHASONE [Suspect]
     Active Substance: BETAMETHASONE
     Dosage: UNK
     Route: 065
  39. DEXAMETHASONE [Suspect]
     Active Substance: DEXAMETHASONE
     Indication: Supportive care
     Dosage: 20 MILLIGRAM, QD
     Route: 048
  40. DEXAMETHASONE [Suspect]
     Active Substance: DEXAMETHASONE
     Dosage: 20 MILLIGRAM, QD
     Route: 048
  41. DEXAMETHASONE [Suspect]
     Active Substance: DEXAMETHASONE
     Dosage: 20 MILLIGRAM, QD
     Route: 048
  42. DEXAMETHASONE [Suspect]
     Active Substance: DEXAMETHASONE
     Dosage: 20 MILLIGRAM, QD
     Route: 048
  43. DEXAMETHASONE [Suspect]
     Active Substance: DEXAMETHASONE
     Dosage: 20 MILLIGRAM, QD
     Route: 048
  44. DEXAMETHASONE [Suspect]
     Active Substance: DEXAMETHASONE
     Dosage: UNK
     Route: 048
  45. DEXAMETHASONE [Suspect]
     Active Substance: DEXAMETHASONE
     Dosage: 20 MILLIGRAM, QD
     Route: 048
  46. ENOXAPARIN [Suspect]
     Active Substance: ENOXAPARIN
     Indication: Tardive dyskinesia
     Dosage: 150 MILLIGRAM, QD
     Route: 058
  47. ENOXAPARIN [Suspect]
     Active Substance: ENOXAPARIN
     Dosage: 150 MILLIGRAM, QD
     Route: 058
  48. ENOXAPARIN [Suspect]
     Active Substance: ENOXAPARIN
     Dosage: 150 MILLIGRAM, QD
     Route: 058
  49. ENOXAPARIN [Suspect]
     Active Substance: ENOXAPARIN
     Dosage: UNK
     Route: 058
  50. LEVOFLOXACIN [Suspect]
     Active Substance: LEVOFLOXACIN
     Indication: Tardive dyskinesia
     Dosage: 500 MILLIGRAM, QD
     Route: 048
  51. LEVOFLOXACIN [Suspect]
     Active Substance: LEVOFLOXACIN
     Dosage: 500 MILLIGRAM, QD
     Route: 048
  52. LEVOFLOXACIN [Suspect]
     Active Substance: LEVOFLOXACIN
     Dosage: 500 MILLIGRAM, QD
     Route: 048
  53. LEVOFLOXACIN [Suspect]
     Active Substance: LEVOFLOXACIN
     Dosage: 500 MILLIGRAM
     Route: 048
  54. LORAZEPAM [Suspect]
     Active Substance: LORAZEPAM
     Indication: Tardive dyskinesia
     Dosage: 0.5 MILLIGRAM, BID
     Route: 048
  55. LORAZEPAM [Suspect]
     Active Substance: LORAZEPAM
     Dosage: 0.5 MILLIGRAM, BID
     Route: 048
  56. LORAZEPAM [Suspect]
     Active Substance: LORAZEPAM
     Dosage: 0.5 MILLIGRAM, QD
     Route: 048
  57. LORAZEPAM [Suspect]
     Active Substance: LORAZEPAM
     Dosage: 0.5 MILLIGRAM
     Route: 048
  58. LORAZEPAM [Suspect]
     Active Substance: LORAZEPAM
     Dosage: 1.0 MILLIGRAM
     Route: 048
  59. METOCLOPRAMIDE [Suspect]
     Active Substance: METOCLOPRAMIDE
     Indication: Tardive dyskinesia
     Dosage: 10 MILLIGRAM, QID
     Route: 048
  60. METOCLOPRAMIDE [Suspect]
     Active Substance: METOCLOPRAMIDE
     Dosage: 10 MILLIGRAM, Q6H
     Route: 048
  61. METOCLOPRAMIDE [Suspect]
     Active Substance: METOCLOPRAMIDE
     Dosage: 10 MILLIGRAM, QD
     Route: 048
  62. METOCLOPRAMIDE [Suspect]
     Active Substance: METOCLOPRAMIDE
     Dosage: 10 MILLIGRAM, QID
     Route: 048
  63. METOCLOPRAMIDE [Suspect]
     Active Substance: METOCLOPRAMIDE
     Dosage: 40 MILLIGRAM, QID
     Route: 048
  64. METOCLOPRAMIDE [Suspect]
     Active Substance: METOCLOPRAMIDE
     Dosage: UNK
     Route: 048
  65. ONDANSETRON [Suspect]
     Active Substance: ONDANSETRON
     Indication: Supportive care
     Dosage: 8 MILLIGRAM
     Route: 048
  66. ONDANSETRON [Suspect]
     Active Substance: ONDANSETRON
     Dosage: 8 MILLIGRAM
     Route: 048
  67. ONDANSETRON [Suspect]
     Active Substance: ONDANSETRON
     Dosage: 8 MILLIGRAM
     Route: 048
  68. ONDANSETRON [Suspect]
     Active Substance: ONDANSETRON
     Dosage: 8 MILLIGRAM
     Route: 048
  69. ONDANSETRON [Suspect]
     Active Substance: ONDANSETRON
     Dosage: 8 MILLIGRAM
     Route: 048
  70. ONDANSETRON [Suspect]
     Active Substance: ONDANSETRON
     Dosage: 8 MILLIGRAM
     Route: 048
  71. ONDANSETRON [Suspect]
     Active Substance: ONDANSETRON
     Dosage: 8 MILLIGRAM
     Route: 048
  72. ONDANSETRON [Suspect]
     Active Substance: ONDANSETRON
     Dosage: 8 MILLIGRAM, QD
     Route: 048
  73. ONDANSETRON [Suspect]
     Active Substance: ONDANSETRON
     Dosage: 8 MILLIGRAM
     Route: 048
  74. ONDANSETRON [Suspect]
     Active Substance: ONDANSETRON
     Dosage: UNK MILLIGRAM
     Route: 048
  75. ONDANSETRON [Suspect]
     Active Substance: ONDANSETRON
     Dosage: UNK
     Route: 065
  76. ONDANSETRON [Suspect]
     Active Substance: ONDANSETRON
     Dosage: 8 MILLIGRAM
     Route: 048
  77. ONDANSETRON [Suspect]
     Active Substance: ONDANSETRON
     Dosage: 8 MILLIGRAM
     Route: 048
  78. PACLITAXEL [Suspect]
     Active Substance: PACLITAXEL
     Indication: Breast cancer
     Dosage: 303 MILLIGRAM
     Route: 042
  79. PACLITAXEL [Suspect]
     Active Substance: PACLITAXEL
     Indication: Supportive care
     Dosage: 393 MILLIGRAM
     Route: 042
  80. PACLITAXEL [Suspect]
     Active Substance: PACLITAXEL
     Dosage: 243 MILLIGRAM, QD
     Route: 042
  81. PACLITAXEL [Suspect]
     Active Substance: PACLITAXEL
     Dosage: 393 MILLIGRAM, QD
     Route: 042
  82. PACLITAXEL [Suspect]
     Active Substance: PACLITAXEL
     Dosage: 393 MILLIGRAM
     Route: 042
  83. PACLITAXEL [Suspect]
     Active Substance: PACLITAXEL
     Dosage: 243 MILLIGRAM
     Route: 042
  84. PACLITAXEL [Suspect]
     Active Substance: PACLITAXEL
     Dosage: 303 MILLIGRAM
     Route: 042
  85. PACLITAXEL [Suspect]
     Active Substance: PACLITAXEL
     Dosage: 303 MILLIGRAM
     Route: 042
  86. PACLITAXEL [Suspect]
     Active Substance: PACLITAXEL
     Dosage: UNK
     Route: 065
  87. CYCLOPHOSPHAMIDE [Suspect]
     Active Substance: CYCLOPHOSPHAMIDE
     Indication: Breast cancer
     Dosage: 1360 MILLIGRAM, Q2WK
     Route: 042
  88. CYCLOPHOSPHAMIDE [Suspect]
     Active Substance: CYCLOPHOSPHAMIDE
     Indication: Tardive dyskinesia
     Dosage: 1360 MILLIGRAM, Q2WK
     Route: 042
  89. CYCLOPHOSPHAMIDE [Suspect]
     Active Substance: CYCLOPHOSPHAMIDE
     Dosage: UNK
     Route: 042
  90. CYCLOPHOSPHAMIDE [Suspect]
     Active Substance: CYCLOPHOSPHAMIDE
     Dosage: UNK
     Route: 065
  91. CYCLOPHOSPHAMIDE [Suspect]
     Active Substance: CYCLOPHOSPHAMIDE
     Dosage: 1360 MILLIGRAM
     Route: 042
  92. CYCLOPHOSPHAMIDE [Suspect]
     Active Substance: CYCLOPHOSPHAMIDE
     Dosage: 1360 MILLIGRAM, Q2WK
     Route: 042
  93. RANITIDINE HYDROCHLORIDE [Suspect]
     Active Substance: RANITIDINE HYDROCHLORIDE
     Indication: Tardive dyskinesia
     Dosage: 150 MILLIGRAM, Q2WK
     Route: 048
  94. RANITIDINE HYDROCHLORIDE [Suspect]
     Active Substance: RANITIDINE HYDROCHLORIDE
     Dosage: 150 MILLIGRAM, BID
     Route: 048
  95. RANITIDINE HYDROCHLORIDE [Suspect]
     Active Substance: RANITIDINE HYDROCHLORIDE
     Dosage: 150 MILLIGRAM
     Route: 048
  96. RANITIDINE HYDROCHLORIDE [Suspect]
     Active Substance: RANITIDINE HYDROCHLORIDE
     Dosage: 150 MILLIGRAM
     Route: 048
  97. RANITIDINE HYDROCHLORIDE [Suspect]
     Active Substance: RANITIDINE HYDROCHLORIDE
     Dosage: UNK
     Route: 048
  98. RANITIDINE HYDROCHLORIDE [Suspect]
     Active Substance: RANITIDINE HYDROCHLORIDE
     Dosage: 150 MILLIGRAM, BID
     Route: 048
  99. RANITIDINE HYDROCHLORIDE [Suspect]
     Active Substance: RANITIDINE HYDROCHLORIDE
     Dosage: 300 MILLIGRAM, BID
     Route: 048
  100. TYLENOL WITH CODEINE [Suspect]
     Active Substance: ACETAMINOPHEN\CODEINE PHOSPHATE
     Indication: Tardive dyskinesia
     Dosage: UNK
     Route: 065
  101. DOXORUBICIN [Suspect]
     Active Substance: DOXORUBICIN
     Indication: Breast cancer
     Dosage: UNK
     Route: 042
  102. DOXORUBICIN [Suspect]
     Active Substance: DOXORUBICIN
     Dosage: 136 MILLIGRAM, Q2WK
     Route: 042
  103. DOXORUBICIN [Suspect]
     Active Substance: DOXORUBICIN
     Dosage: 136 MILLIGRAM, Q2WK
     Route: 042
  104. DOXORUBICIN [Suspect]
     Active Substance: DOXORUBICIN
     Dosage: 136 MILLIGRAM, Q2WK
     Route: 042
  105. DOXORUBICIN [Suspect]
     Active Substance: DOXORUBICIN
     Dosage: 136 MILLIGRAM, Q2WK
     Route: 042
  106. ACETAMINOPHEN AND CODEINE [Suspect]
     Active Substance: ACETAMINOPHEN\CODEINE PHOSPHATE
     Indication: Tardive dyskinesia
     Dosage: UNK
     Route: 065
  107. ACETAMINOPHEN AND CODEINE [Suspect]
     Active Substance: ACETAMINOPHEN\CODEINE PHOSPHATE
     Dosage: 30 MILLIGRAM, QD
     Route: 065
  108. ACETAMINOPHEN AND CODEINE [Suspect]
     Active Substance: ACETAMINOPHEN\CODEINE PHOSPHATE
     Dosage: 30 MILLIGRAM, Q4H
     Route: 065
  109. ACETAMINOPHEN AND CODEINE [Suspect]
     Active Substance: ACETAMINOPHEN\CODEINE PHOSPHATE
     Dosage: 30 MILLIGRAM, QD
     Route: 065
  110. ACETAMINOPHEN AND CODEINE [Suspect]
     Active Substance: ACETAMINOPHEN\CODEINE PHOSPHATE
     Dosage: 30 MILLIGRAM, Q4H
     Route: 065
  111. EMEND [Suspect]
     Active Substance: APREPITANT
     Indication: Supportive care
     Dosage: UNK
     Route: 048
  112. EMEND [Suspect]
     Active Substance: APREPITANT
     Dosage: 125 MILLIGRAM, QD
     Route: 048
  113. EMEND [Suspect]
     Active Substance: APREPITANT
     Dosage: 80 MILLIGRAM, QD
     Route: 048
  114. EMEND [Suspect]
     Active Substance: APREPITANT
     Dosage: UNK
     Route: 048
  115. EMEND [Suspect]
     Active Substance: APREPITANT
     Dosage: 80 MILLIGRAM, QD
     Route: 048
  116. EMEND [Suspect]
     Active Substance: APREPITANT
     Dosage: 125 MILLIGRAM, QD
     Route: 048
  117. EMEND [Suspect]
     Active Substance: APREPITANT
     Dosage: 125 MILLIGRAM, QD
     Route: 048
  118. EMEND [Suspect]
     Active Substance: APREPITANT
     Dosage: 80 MILLIGRAM, QD
     Route: 048
  119. EMEND [Suspect]
     Active Substance: APREPITANT
     Dosage: 125 MILLIGRAM, QD
     Route: 048
  120. EMEND [Suspect]
     Active Substance: APREPITANT
     Dosage: 125 MILLIGRAM, QD
     Route: 048
  121. EMEND [Suspect]
     Active Substance: APREPITANT
     Dosage: 80 MILLIGRAM, QD
     Route: 048
  122. EMEND [Suspect]
     Active Substance: APREPITANT
     Dosage: 80 MILLIGRAM, QD
     Route: 048
  123. EMEND [Suspect]
     Active Substance: APREPITANT
     Dosage: UNK
     Route: 048
  124. EMEND [Suspect]
     Active Substance: APREPITANT
     Dosage: UNK
     Route: 048
  125. EMEND [Suspect]
     Active Substance: APREPITANT
     Dosage: 80 MILLIGRAM, QD
     Route: 048
  126. EMEND [Suspect]
     Active Substance: APREPITANT
     Dosage: 125 MILLIGRAM, QD
     Route: 048
  127. EMEND [Suspect]
     Active Substance: APREPITANT
     Dosage: 80 MILLIGRAM, QD
     Route: 048
  128. EMEND [Suspect]
     Active Substance: APREPITANT
     Dosage: 80 MILLIGRAM
     Route: 048
  129. EMEND [Suspect]
     Active Substance: APREPITANT
     Dosage: 80 MILLIGRAM, QD
     Route: 048
  130. EMEND [Suspect]
     Active Substance: APREPITANT
     Dosage: 125 MILLIGRAM, QD
     Route: 048
  131. EMEND [Suspect]
     Active Substance: APREPITANT
     Dosage: 80 MILLIGRAM, QD
     Route: 048
  132. CYCLOPHOSPHAMIDE [Suspect]
     Active Substance: CYCLOPHOSPHAMIDE
     Indication: Tardive dyskinesia
     Dosage: UNK
     Route: 040
  133. CYCLOPHOSPHAMIDE [Suspect]
     Active Substance: CYCLOPHOSPHAMIDE
     Indication: Breast cancer female
     Dosage: UNK
     Route: 040
  134. CYCLOPHOSPHAMIDE [Suspect]
     Active Substance: CYCLOPHOSPHAMIDE
     Dosage: UNK
     Route: 040
  135. CYCLOPHOSPHAMIDE [Suspect]
     Active Substance: CYCLOPHOSPHAMIDE
     Dosage: UNK
     Route: 065
  136. CYCLOPHOSPHAMIDE [Suspect]
     Active Substance: CYCLOPHOSPHAMIDE
     Dosage: UNK
     Route: 040
  137. CYCLOPHOSPHAMIDE [Suspect]
     Active Substance: CYCLOPHOSPHAMIDE
     Dosage: UNK
     Route: 040
  138. PEGFILGRASTIM [Suspect]
     Active Substance: PEGFILGRASTIM
     Indication: Supportive care
     Dosage: 6.0 MILLIGRAM
     Route: 058
  139. FILGRASTIM [Suspect]
     Active Substance: FILGRASTIM
     Indication: Supportive care
     Route: 048
  140. FILGRASTIM [Suspect]
     Active Substance: FILGRASTIM
     Dosage: 480.0 MICROGRAM, QD
     Route: 065

REACTIONS (12)
  - Atelectasis [Recovered/Resolved]
  - Gastrointestinal disorder [Recovered/Resolved]
  - Computerised tomogram thorax [Recovered/Resolved]
  - Computerised tomogram thorax abnormal [Recovered/Resolved]
  - Hypoxia [Recovered/Resolved]
  - Off label use [Unknown]
  - Cough [Recovered/Resolved]
  - Fatigue [Recovered/Resolved]
  - Pyrexia [Recovered/Resolved]
  - Nausea [Recovered/Resolved]
  - Dyspnoea [Recovered/Resolved]
  - Rash [Recovered/Resolved]
